FAERS Safety Report 6311337-3 (Version None)
Quarter: 2009Q3

REPORT INFORMATION
  Report Type: 
  Country: None (occurrence: None)
  Receive Date: 20090817
  Receipt Date: 20090806
  Transmission Date: 20100115
  Serious: Yes (Life-Threatening, Hospitalization, Disabling, Other)
  Sender: FDA-Public Use
  Company Number: US-JNJFOC-20060805395

PATIENT
  Sex: Female

DRUGS (7)
  1. REMICADE [Suspect]
     Route: 042
  2. REMICADE [Suspect]
     Indication: RHEUMATOID ARTHRITIS
     Dosage: UNSPECIFIED DOSE EVERY 6-8 WEEKS
     Route: 042
  3. METHOTREXATE [Suspect]
     Indication: DRUG USE FOR UNKNOWN INDICATION
  4. STEROID [Concomitant]
  5. PLAVIX [Concomitant]
  6. COREG [Concomitant]
  7. PROTONIX [Concomitant]

REACTIONS (8)
  - ANAEMIA [None]
  - BLOOD CREATININE INCREASED [None]
  - BLOOD GLUCOSE INCREASED [None]
  - DISORIENTATION [None]
  - DYSPNOEA [None]
  - MYOCARDIAL INFARCTION [None]
  - PULMONARY OEDEMA [None]
  - UNEVALUABLE EVENT [None]
